FAERS Safety Report 16023568 (Version 2)
Quarter: 2019Q1

REPORT INFORMATION
  Report Type: Spontaneous
  Country: US (occurrence: US)
  Receive Date: 20190301
  Receipt Date: 20190305
  Transmission Date: 20190418
  Serious: No
  Sender: FDA-Public Use
  Company Number: US-DUCHESNAY INC.-2063399

PATIENT
  Sex: Female

DRUGS (1)
  1. DICLEGIS [Suspect]
     Active Substance: DOXYLAMINE SUCCINATE\PYRIDOXINE HYDROCHLORIDE
     Indication: MORNING SICKNESS
     Route: 048
     Dates: start: 20190225, end: 20190227

REACTIONS (2)
  - Maternal exposure timing unspecified [None]
  - Retching [Recovered/Resolved]

NARRATIVE: CASE EVENT DATE: 20190225
